FAERS Safety Report 20187276 (Version 1)
Quarter: 2021Q4

REPORT INFORMATION
  Report Type: Spontaneous
  Country: US (occurrence: None)
  Receive Date: 20211214
  Receipt Date: 20211214
  Transmission Date: 20220303
  Serious: No
  Sender: FDA-Public Use
  Company Number: None

PATIENT
  Age: 27 Year
  Sex: Female

DRUGS (3)
  1. HUMIRA [Suspect]
     Active Substance: ADALIMUMAB
     Indication: Colitis ulcerative
     Dosage: FREQUENCY : EVERY OTHER WEEK;?
     Route: 058
     Dates: start: 20210423
  2. VITAMINS [Concomitant]
     Active Substance: VITAMINS
  3. MESALAMINE [Concomitant]
     Active Substance: MESALAMINE

REACTIONS (5)
  - Abdominal pain [None]
  - Diarrhoea [None]
  - Condition aggravated [None]
  - Weight abnormal [None]
  - Impaired quality of life [None]

NARRATIVE: CASE EVENT DATE: 20211101
